FAERS Safety Report 18904685 (Version 1)
Quarter: 2021Q1

REPORT INFORMATION
  Report Type: Spontaneous
  Country: NL (occurrence: NO)
  Receive Date: 20210217
  Receipt Date: 20210217
  Transmission Date: 20210420
  Serious: Yes (Hospitalization)
  Sender: FDA-Public Use
  Company Number: NO-FRESENIUS KABI-FK202101525

PATIENT
  Age: 68 Year
  Sex: Male
  Weight: 73 kg

DRUGS (3)
  1. GEMCITABINE. [Suspect]
     Active Substance: GEMCITABINE
     Indication: PANCREATIC CARCINOMA
     Dosage: 75 PERCENT OF FULL DOSE (CYTOSTATICS)
     Route: 065
     Dates: start: 20210121
  2. GEMCITABINE. [Suspect]
     Active Substance: GEMCITABINE
     Indication: CHEMOTHERAPY
  3. PANCREATIN [Concomitant]
     Active Substance: PANCRELIPASE
     Indication: DYSPEPSIA
     Dosage: CREON 25000 ENTEROCAPS 25000 E / 18000 E / 1000 E?3 X DAILY
     Route: 065
     Dates: start: 202012

REACTIONS (5)
  - Rash [Unknown]
  - Urticaria [Recovering/Resolving]
  - Pyrexia [Recovered/Resolved]
  - Headache [Unknown]
  - Asthenia [Unknown]

NARRATIVE: CASE EVENT DATE: 20210128
